FAERS Safety Report 14693469 (Version 5)
Quarter: 2018Q2

REPORT INFORMATION
  Report Type: Spontaneous
  Country: ES (occurrence: ES)
  Receive Date: 20180329
  Receipt Date: 20180607
  Transmission Date: 20180711
  Serious: Yes (Hospitalization, Other)
  Sender: FDA-Public Use
  Company Number: ES-PFIZER INC-2018125989

PATIENT
  Age: 43 Year
  Sex: Female

DRUGS (4)
  1. METHADONE [Interacting]
     Active Substance: METHADONE HYDROCHLORIDE
     Indication: DETOXIFICATION
     Dosage: 15 MG, 1X/DAY (FOLLOWED BY GRADUAL WITHDRAWAL)
  2. SERTRALINE HCL [Suspect]
     Active Substance: SERTRALINE HYDROCHLORIDE
     Indication: DEPRESSIVE SYMPTOM
     Dosage: 100 MG, 1X/DAY (INCREASING DOSE)
  3. METHADONE [Interacting]
     Active Substance: METHADONE HYDROCHLORIDE
     Dosage: ON REDUCED DOSE. THE DOSE WAS REDUCED EVERY 48 HOURS.
  4. ZOPICLONE [Concomitant]
     Active Substance: ZOPICLONE
     Indication: INSOMNIA
     Dosage: 7.5 MG, UNK

REACTIONS (4)
  - Withdrawal syndrome [Recovered/Resolved]
  - Drug interaction [Recovered/Resolved]
  - Mania [Recovered/Resolved]
  - Psychotic symptom [Recovered/Resolved]
